FAERS Safety Report 9707720 (Version 1)
Quarter: 2013Q4

REPORT INFORMATION
  Report Type: Spontaneous
  Country: GB (occurrence: GB)
  Receive Date: 20131125
  Receipt Date: 20131125
  Transmission Date: 20140711
  Serious: Yes (Other)
  Sender: FDA-Public Use
  Company Number: GB-VERTEX PHARMACEUTICALS INC-2013-011328

PATIENT
  Sex: 0

DRUGS (4)
  1. INCIVO [Suspect]
     Indication: HEPATITIS C
     Route: 048
  2. BOCEPREVIR [Suspect]
     Indication: HEPATITIS C
     Dosage: DOSAGE FORM: UNKNOWN
     Route: 065
  3. PEGINTERFERON ALFA [Suspect]
     Indication: HEPATITIS C
     Dosage: DOSAGE FORM: UNKNOWN
     Route: 065
  4. RIBAVIRIN [Suspect]
     Indication: HEPATITIS C
     Dosage: DOSAGE FORM: UNKNOWN
     Route: 065

REACTIONS (13)
  - Depression [Unknown]
  - Psychotic disorder [Unknown]
  - Gastrointestinal haemorrhage [Unknown]
  - Sepsis [Unknown]
  - Hepatic cirrhosis [Unknown]
  - Fibrosis [Unknown]
  - Fatigue [Unknown]
  - Rash [Unknown]
  - Anaemia [Unknown]
  - Hepatitis C [Unknown]
  - Off label use [Unknown]
  - Anorectal disorder [Unknown]
  - Drug ineffective [Unknown]
